FAERS Safety Report 5923581-5 (Version None)
Quarter: 2008Q4

REPORT INFORMATION
  Report Type: 
  Country: None (occurrence: None)
  Receive Date: 20081015
  Receipt Date: 20081007
  Transmission Date: 20090506
  Serious: Yes (Other)
  Sender: FDA-Public Use
  Company Number: TPA2008A01411

PATIENT
  Age: 57 Year
  Sex: Female

DRUGS (3)
  1. ACTOS [Suspect]
     Indication: DRUG USE FOR UNKNOWN INDICATION
     Dosage: 30 MG, PER ORAL, 45 MG, PER ORAL
     Route: 048
     Dates: end: 20080901
  2. ACTOS [Suspect]
     Indication: DRUG USE FOR UNKNOWN INDICATION
     Dosage: 30 MG, PER ORAL, 45 MG, PER ORAL
     Route: 048
     Dates: start: 20080201
  3. UNSPECIFIED SULFONYLUREA (SULFONAMIDES, UREA DERIVATIVES) [Concomitant]

REACTIONS (2)
  - FALL [None]
  - HIP FRACTURE [None]
